FAERS Safety Report 6104729-9 (Version None)
Quarter: 2009Q1

REPORT INFORMATION
  Report Type: 
  Country: None (occurrence: None)
  Receive Date: 20090304
  Receipt Date: 20090223
  Transmission Date: 20090719
  Serious: Yes (Other)
  Sender: FDA-Public Use
  Company Number: DSA_33268_2009

PATIENT
  Age: 75 Year
  Sex: Male

DRUGS (2)
  1. CARDIZEM CD [Suspect]
     Indication: DRUG USE FOR UNKNOWN INDICATION
     Dosage: DF
  2. COZAAR [Concomitant]

REACTIONS (1)
  - DEMENTIA [None]
